FAERS Safety Report 5206511-3 (Version None)
Quarter: 2007Q1

REPORT INFORMATION
  Report Type: 
  Country: None (occurrence: None)
  Receive Date: 20070109
  Receipt Date: 20061230
  Transmission Date: 20070707
  Serious: Yes (Other)
  Sender: FDA-Public Use
  Company Number: 2007301090

PATIENT
  Age: 39 Year
  Sex: Male
  Weight: 79.4 kg

DRUGS (1)
  1. ROGAINE 5 [Suspect]
     Indication: HYPOTRICHOSIS
     Dosage: AS RECOMMENDED TWICE
     Dates: start: 20061201, end: 20061229

REACTIONS (2)
  - RASH ERYTHEMATOUS [None]
  - RASH PRURITIC [None]
